FAERS Safety Report 8086680-0 (Version None)
Quarter: 2012Q1

REPORT INFORMATION
  Report Type: 
  Country: None (occurrence: None)
  Receive Date: 20120128
  Receipt Date: 20110421
  Transmission Date: 20120608
  Serious: No
  Sender: FDA-Public Use
  Company Number: US-ABBOTT-11P-163-0720769-00

PATIENT
  Age: 27 Year
  Sex: Male

DRUGS (4)
  1. FOSAMAX PLUS D [Concomitant]
     Indication: OSTEOPENIA
  2. LIALDA [Concomitant]
     Indication: CROHN'S DISEASE
     Dosage: 4 TABLETS, DAILY
  3. PREDNISONE TAB [Concomitant]
     Indication: CROHN'S DISEASE
     Dosage: 40 MILLIGRAMS, DAILY
  4. HUMIRA [Suspect]
     Indication: CROHN'S DISEASE
     Dates: start: 20101119

REACTIONS (2)
  - NASOPHARYNGITIS [None]
  - BODY TEMPERATURE INCREASED [None]
